FAERS Safety Report 9994920 (Version 3)
Quarter: 2014Q2

REPORT INFORMATION
  Report Type: Spontaneous
  Country: US (occurrence: US)
  Receive Date: 20140311
  Receipt Date: 20140527
  Transmission Date: 20141212
  Serious: Yes (Other)
  Sender: FDA-Public Use
  Company Number: US-SA-2014SA030235

PATIENT
  Age: 50 Year
  Sex: Female
  Weight: 51 kg

DRUGS (10)
  1. HECTOROL [Suspect]
     Indication: HYPERPARATHYROIDISM SECONDARY
     Dosage: HECTORAL 2 MCG
     Route: 040
     Dates: start: 20131222, end: 20131222
  2. HEPARIN [Concomitant]
     Dosage: 1000UNITS/ML, SYSTEMIC INITIAL BOLUS 500 UNITS IVP
     Dates: start: 20131002
  3. SODIUM CHLORIDE [Concomitant]
     Dosage: 23.4 %; 10 ML IVP DURING DIALYSIS
     Dates: start: 20131002
  4. HYDRALAZINE [Concomitant]
     Route: 048
  5. HYDROMORPHONE [Concomitant]
     Indication: PAIN
     Dosage: EVERY 4 HOURS IF NEEDED
     Route: 048
  6. LABETALOL [Concomitant]
     Route: 048
  7. RENVELA [Concomitant]
     Route: 048
  8. SENSIPAR [Concomitant]
     Route: 048
  9. TUMS [Concomitant]
  10. VERAPAMIL [Concomitant]
     Route: 048

REACTIONS (2)
  - Syncope [Recovered/Resolved]
  - Hypotension [Unknown]
